FAERS Safety Report 5885459-5 (Version None)
Quarter: 2008Q3

REPORT INFORMATION
  Report Type: 
  Country: None (occurrence: None)
  Receive Date: 20080915
  Receipt Date: 20080915
  Transmission Date: 20090109
  Serious: Yes (Disabling)
  Sender: FDA-Public Use
  Company Number: None

PATIENT
  Age: 5 Month
  Sex: Male
  Weight: 6.804 kg

DRUGS (1)
  1. G-CSF [Suspect]

REACTIONS (1)
  - UNEVALUABLE EVENT [None]
